FAERS Safety Report 4937761-9 (Version None)
Quarter: 2006Q1

REPORT INFORMATION
  Report Type: 
  Country: None (occurrence: None)
  Receive Date: 20060309
  Receipt Date: 20051027
  Transmission Date: 20060701
  Serious: Yes (Life-Threatening)
  Sender: FDA-Public Use
  Company Number: US-ROCHE-422994

PATIENT
  Age: 51 Year
  Sex: Female
  Weight: 78 kg

DRUGS (18)
  1. PEGASYS [Suspect]
     Dosage: TRADENAME REPORTED AS PEGASYS REDIPREN.
     Route: 058
     Dates: start: 20050831, end: 20051013
  2. PEGASYS [Suspect]
     Dosage: TRADENAME REPORTED AS PEGASYS REDIPREN.
     Route: 058
     Dates: start: 20051014, end: 20051021
  3. PEGASYS [Suspect]
     Route: 058
     Dates: end: 20051101
  4. RIBAVIRIN [Suspect]
     Dosage: 400 MG IN THE MORNING AND 600 MG IN THE EVENING.
     Route: 048
     Dates: start: 20050831, end: 20051027
  5. RIBAVIRIN [Suspect]
     Route: 048
     Dates: end: 20051101
  6. ALBUTEROL [Concomitant]
     Indication: ASTHMA
     Route: 055
  7. UNSPECIFIED MEDICATION [Concomitant]
     Indication: ASTHMA
     Dosage: REPORTED AS NEBULIZER NOS.
     Route: 055
  8. NEURONTIN [Concomitant]
     Indication: BIPOLAR DISORDER
     Route: 048
  9. PROZAC [Concomitant]
     Indication: BIPOLAR DISORDER
     Route: 048
  10. HYDROXYZINE [Concomitant]
     Route: 048
  11. VALIUM [Concomitant]
     Route: 048
  12. SOMA [Concomitant]
     Route: 048
  13. PROCHLORPERAZINE [Concomitant]
     Indication: NAUSEA
     Route: 048
  14. LASIX [Concomitant]
     Indication: FLUID RETENTION
     Route: 048
  15. POTASSIUM NOS [Concomitant]
     Indication: FLUID RETENTION
     Route: 048
  16. SEROQUEL [Concomitant]
     Indication: SOMNOLENCE
     Route: 048
  17. DARVOCET [Concomitant]
     Indication: PAIN
     Route: 048
  18. OXYGEN [Concomitant]
     Indication: ASTHMA

REACTIONS (5)
  - HOMICIDAL IDEATION [None]
  - NEUTROPHIL COUNT DECREASED [None]
  - NON-CARDIAC CHEST PAIN [None]
  - SUICIDAL IDEATION [None]
  - WHITE BLOOD CELL COUNT DECREASED [None]
